FAERS Safety Report 12351843 (Version 1)
Quarter: 2016Q2

REPORT INFORMATION
  Report Type: Report from Study
  Country: AU (occurrence: AU)
  Receive Date: 20160510
  Receipt Date: 20160510
  Transmission Date: 20160815
  Serious: Yes (Life-Threatening, Hospitalization, Other)
  Sender: FDA-Public Use
  Company Number: AU-JNJFOC-20160505776

PATIENT
  Age: 0 Year
  Sex: Male
  Weight: 3.88 kg

DRUGS (9)
  1. FISH OIL [Concomitant]
     Active Substance: FISH OIL
     Indication: NUTRITIONAL SUPPLEMENTATION
     Dosage: FROM FIRST TRIMESTER TO TIME OF DELIVERY.
     Route: 048
  2. FOLIC ACID. [Concomitant]
     Active Substance: FOLIC ACID
     Indication: CONGENITAL ABNORMALITY PROPHYLAXIS
     Dosage: FROM FIRST TRIMESTER TO TIME OF DELIVERY.
     Route: 048
  3. QUETIAPINE XR [Suspect]
     Active Substance: QUETIAPINE
     Indication: PSYCHOTIC DISORDER
     Dosage: STARTED BEFORE PREGNANCY.
     Route: 048
  4. SERTRALINE [Suspect]
     Active Substance: SERTRALINE HYDROCHLORIDE
     Indication: DEPRESSION
     Dosage: STARTED BEFORE PREGNANCY
     Route: 048
  5. VITAMIN D [Concomitant]
     Active Substance: CHOLECALCIFEROL
     Indication: VITAMIN SUPPLEMENTATION
     Dosage: FROM FIRST TRIMESTER TO TIME OF DELIVERY.
     Route: 048
  6. THYROXINE [Suspect]
     Active Substance: LEVOTHYROXINE
     Indication: HYPOTHYROIDISM
     Dosage: TREATMENT GIVEN FROM 14-21 WEEK OF GESTATION.
     Route: 048
  7. RISPERIDONE. [Suspect]
     Active Substance: RISPERIDONE
     Indication: PSYCHOTIC DISORDER
     Dosage: 1 MG AND 0.5 MG ON ALTERNATE DAYS; STARTED BEFORE PREGNANCY.
     Route: 048
  8. LITHIUM. [Suspect]
     Active Substance: LITHIUM
     Indication: DRUG THERAPY
     Dosage: 750-1200 MG; STARTED BEFORE PREGNANCY
     Route: 048
  9. RANITIDINE. [Suspect]
     Active Substance: RANITIDINE
     Indication: GASTROOESOPHAGEAL REFLUX DISEASE
     Dosage: SECOND TRIMESTER TO THE TIME OF DELIVERY
     Route: 048

REACTIONS (5)
  - Ventricular septal defect [Recovered/Resolved]
  - Foetal distress syndrome [Recovered/Resolved]
  - Respiratory distress [Recovered/Resolved with Sequelae]
  - Withdrawal syndrome [Recovered/Resolved with Sequelae]
  - Foetal exposure during pregnancy [Unknown]

NARRATIVE: CASE EVENT DATE: 20150219
